FAERS Safety Report 5104362-1 (Version None)
Quarter: 2006Q3

REPORT INFORMATION
  Report Type: 
  Country: None (occurrence: None)
  Receive Date: 20060731
  Receipt Date: 20060210
  Transmission Date: 20061208
  Serious: Yes (Other)
  Sender: FDA-Public Use
  Company Number: US-JNJFOC-20060203071

PATIENT
  Age: 51 Year
  Sex: Male
  Weight: 106.5953 kg

DRUGS (7)
  1. RISPERDAL [Suspect]
     Indication: BIPOLAR DISORDER
     Dosage: SEE IMAGE
     Dates: start: 19940101, end: 20060101
  2. RISPERDAL [Suspect]
     Indication: BIPOLAR DISORDER
     Dosage: SEE IMAGE
     Dates: start: 20060101
  3. GLUCOPHAGE [Concomitant]
  4. LITHIUM (LITHIUM) [Concomitant]
  5. SERZONE [Concomitant]
  6. ORAL ANTIHISTAMINE (ANTIHISTAMINES) [Concomitant]
  7. ASPIRIN [Concomitant]

REACTIONS (3)
  - DIABETES MELLITUS [None]
  - SLEEP DISORDER [None]
  - WEIGHT DECREASED [None]
